FAERS Safety Report 13924313 (Version 2)
Quarter: 2017Q3

REPORT INFORMATION
  Report Type: Spontaneous
  Country: IR (occurrence: IR)
  Receive Date: 20170831
  Receipt Date: 20170906
  Transmission Date: 20171127
  Serious: Yes (Other)
  Sender: FDA-Public Use
  Company Number: IR-HORIZON-BUP-0062-2017

PATIENT
  Age: 3 Day
  Sex: Male

DRUGS (3)
  1. L-ARGININE [Concomitant]
     Active Substance: ARGININE
     Dosage: 700 MG/KG/DAY
  2. SODIUM PHENYLBUTYRATE. [Suspect]
     Active Substance: SODIUM PHENYLBUTYRATE
     Indication: ARGININOSUCCINATE LYASE DEFICIENCY
     Dosage: 300 MG/KG/DAY
  3. SODIUM BENZOATE [Concomitant]
     Active Substance: SODIUM BENZOATE
     Dosage: 300 MG/KG/DAY
     Route: 042

REACTIONS (2)
  - Hyperammonaemia [Not Recovered/Not Resolved]
  - Drug ineffective [Not Recovered/Not Resolved]
